FAERS Safety Report 22339047 (Version 2)
Quarter: 2023Q2

REPORT INFORMATION
  Report Type: Report from Study
  Country: US (occurrence: US)
  Receive Date: 20230518
  Receipt Date: 20230518
  Transmission Date: 20230722
  Serious: Yes (Hospitalization, Other)
  Sender: FDA-Public Use
  Company Number: US-JAZZ PHARMACEUTICALS-2022-US-025047

PATIENT
  Age: 62 Year
  Sex: Female

DRUGS (17)
  1. XYWAV [Suspect]
     Active Substance: CALCIUM OXYBATE\MAGNESIUM OXYBATE\POTASSIUM OXYBATE\SODIUM OXYBATE
     Indication: Narcolepsy
     Dosage: 4G FIRST DOSE AND 4.25G SECOND DOSE
  2. XYWAV [Suspect]
     Active Substance: CALCIUM OXYBATE\MAGNESIUM OXYBATE\POTASSIUM OXYBATE\SODIUM OXYBATE
     Indication: Cataplexy
  3. XYREM [Suspect]
     Active Substance: SODIUM OXYBATE
     Indication: Narcolepsy
  4. XYREM [Suspect]
     Active Substance: SODIUM OXYBATE
     Indication: Cataplexy
  5. MULTI MINERAL [Concomitant]
     Dosage: UNK
     Dates: start: 20151015
  6. PYRIDOXINE [Concomitant]
     Active Substance: PYRIDOXINE
     Dosage: UNK
     Dates: start: 20151015
  7. DIETARY SUPPLEMENT [Concomitant]
     Active Substance: DIETARY SUPPLEMENT
     Dosage: UNK
     Dates: start: 20151015
  8. INOSITOL [Concomitant]
     Active Substance: INOSITOL
     Dosage: UNK
     Dates: start: 20151015
  9. CHOLINE BITARTRATE [Concomitant]
     Active Substance: CHOLINE BITARTRATE
     Dosage: UNK
     Dates: start: 20151015
  10. VITAMIN D NOS [Concomitant]
     Active Substance: VITAMIN D NOS
     Dosage: UNK UNK, QD
     Dates: start: 20151020
  11. FISH OIL [Concomitant]
     Active Substance: FISH OIL
     Dosage: UNK
     Dates: start: 20151020
  12. ASCORBIC ACID [Concomitant]
     Active Substance: ASCORBIC ACID
     Dosage: UNK UNK, QD
     Dates: start: 20151020
  13. GLUCOSAMIN CHONDROITIN MSM [Concomitant]
     Dosage: UNK
     Dates: start: 20151020
  14. COENZYME Q10 [Concomitant]
     Active Substance: DIETARY SUPPLEMENT\UBIDECARENONE
     Dosage: UNK
     Dates: start: 20151020
  15. MAGNESIUM CITRATE [Concomitant]
     Active Substance: MAGNESIUM CITRATE
     Dosage: UNK UNK, QD
     Dates: start: 20151020
  16. CALCIUM CITRATE\CHOLECALCIFEROL [Concomitant]
     Active Substance: CALCIUM CITRATE\CHOLECALCIFEROL
     Dosage: UNK UNK, QD
     Dates: start: 20151020
  17. PAXLOVID [Concomitant]
     Active Substance: NIRMATRELVIR\RITONAVIR
     Dosage: UNK
     Dates: start: 20220726

REACTIONS (2)
  - COVID-19 pneumonia [Unknown]
  - COVID-19 [Unknown]

NARRATIVE: CASE EVENT DATE: 20210301
